FAERS Safety Report 4289576-5 (Version None)
Quarter: 2004Q1

REPORT INFORMATION
  Report Type: 
  Country: None (occurrence: None)
  Receive Date: 20040206
  Receipt Date: 20040126
  Transmission Date: 20041129
  Serious: Yes (Death, Other)
  Sender: FDA-Public Use
  Company Number: USA-2002-0002069

PATIENT
  Age: 29 Year
  Sex: Female

DRUGS (1)
  1. OXYCONTIN [Suspect]
     Indication: PAIN
     Dosage: 40 MG, Q12H, ORAL
     Route: 048

REACTIONS (5)
  - ACCIDENT [None]
  - AGGRESSION [None]
  - CARDIAC FAILURE [None]
  - DRUG DEPENDENCE [None]
  - RESPIRATORY FAILURE [None]
